FAERS Safety Report 6696292-9 (Version None)
Quarter: 2010Q2

REPORT INFORMATION
  Report Type: 
  Country: None (occurrence: None)
  Receive Date: 20100419
  Receipt Date: 20090706
  Transmission Date: 20101027
  Serious: No
  Sender: FDA-Public Use
  Company Number: 2009-00424

PATIENT
  Age: 13 Year
  Sex: Male
  Weight: 65.7716 kg

DRUGS (6)
  1. ZICAM COLD REMEDY GEL SWABS [Suspect]
     Dosage: SPORADIC, 3-4 YEARS; 3-4 YRS AGO - RECENT
  2. ZICAM COLD REMEDY GEL SWABS [Suspect]
     Dosage: SPORADIC, 3-4 YEARS; 3-4 YRS AGO - RECENT
  3. ZICAM COLD REMEDY GEL SWABS [Suspect]
     Dosage: SPORADIC, 3-4 YEARS; 3-4 YRS AGO - RECENT
  4. CONCERTA [Concomitant]
  5. ZYRTEC [Concomitant]
  6. BENADRYL [Concomitant]

REACTIONS (1)
  - ANOSMIA [None]
